FAERS Safety Report 25225044 (Version 2)
Quarter: 2025Q2

REPORT INFORMATION
  Report Type: Report from Study
  Country: US (occurrence: US)
  Receive Date: 20250422
  Receipt Date: 20250428
  Transmission Date: 20250716
  Serious: No
  Sender: SUNOVION
  Company Number: US-SUMITOMO PHARMA SWITZERLAND GMBH-2025SPA004651

PATIENT

DRUGS (9)
  1. ORGOVYX [Suspect]
     Active Substance: RELUGOLIX
     Indication: Prostate cancer
     Dosage: 120 MG, QD
     Route: 048
     Dates: start: 20250408, end: 20250408
  2. ORGOVYX [Suspect]
     Active Substance: RELUGOLIX
     Dosage: 360 MG, SINGLE
     Route: 048
     Dates: start: 20250409, end: 20250409
  3. ORGOVYX [Suspect]
     Active Substance: RELUGOLIX
     Dosage: 120 MG, QD
     Route: 048
     Dates: start: 20250410
  4. ASPIRIN [Concomitant]
     Active Substance: ASPIRIN
     Route: 065
  5. ASTAXANTHIN [Concomitant]
     Active Substance: ASTAXANTHIN
     Route: 065
  6. CARISOPRODOL [Concomitant]
     Active Substance: CARISOPRODOL
     Route: 065
  7. DILTIAZEM [Concomitant]
     Active Substance: DILTIAZEM
     Route: 065
  8. TADALAFIL [Concomitant]
     Active Substance: TADALAFIL
     Route: 065
  9. NALTREXONE [Concomitant]
     Active Substance: NALTREXONE
     Route: 048

REACTIONS (6)
  - Exercise tolerance decreased [Unknown]
  - Sinus tachycardia [Unknown]
  - Heart rate increased [Unknown]
  - Hot flush [Unknown]
  - Fatigue [Unknown]
  - Off label use [Unknown]
